FAERS Safety Report 9259516 (Version 2)
Quarter: 2013Q3

REPORT INFORMATION
  Report Type: Spontaneous
  Country: US (occurrence: US)
  Receive Date: 20130428
  Receipt Date: 20130913
  Transmission Date: 20140515
  Serious: Yes (Other)
  Sender: FDA-Public Use
  Company Number: US-AMGEN-USASP2013029261

PATIENT
  Age: 42 Year
  Sex: Male
  Weight: 49.88 kg

DRUGS (1)
  1. ENBREL [Suspect]
     Indication: JUVENILE IDIOPATHIC ARTHRITIS
     Dosage: 50 MG, QWK
     Route: 058
     Dates: start: 1999

REACTIONS (5)
  - Heart valve incompetence [Not Recovered/Not Resolved]
  - Injection site pain [Recovered/Resolved]
  - Pain [Not Recovered/Not Resolved]
  - Hypothermia [Not Recovered/Not Resolved]
  - Respiratory rate increased [Not Recovered/Not Resolved]
